FAERS Safety Report 8852441 (Version 1)
Quarter: 2012Q4

REPORT INFORMATION
  Report Type: Spontaneous
  Country: US (occurrence: None)
  Receive Date: 20121017
  Receipt Date: 20121017
  Transmission Date: 20130627
  Serious: Yes (Other)
  Sender: FDA-Public Use
  Company Number: A0997139A

PATIENT
  Age: 76 Year
  Sex: Male

DRUGS (1)
  1. METHYLCELLULOSE [Suspect]

REACTIONS (4)
  - Choking [None]
  - Retching [None]
  - Pharyngeal oedema [None]
  - Dyspnoea [None]
